FAERS Safety Report 19809632 (Version 1)
Quarter: 2021Q3

REPORT INFORMATION
  Report Type: Spontaneous
  Country: US (occurrence: US)
  Receive Date: 20210908
  Receipt Date: 20210908
  Transmission Date: 20211014
  Serious: No
  Sender: FDA-Public Use
  Company Number: US-ROCHE-2720047

PATIENT
  Sex: Male
  Weight: 78.09 kg

DRUGS (2)
  1. ALECENSA [Suspect]
     Active Substance: ALECTINIB HYDROCHLORIDE
     Indication: NON-SMALL CELL LUNG CANCER
     Dosage: 600 MG IN THE MORNING AND 600 MG IN THE EVENING
     Route: 048
     Dates: start: 201708
  2. XALKORI [Concomitant]
     Active Substance: CRIZOTINIB

REACTIONS (2)
  - Rash [Unknown]
  - Fatigue [Unknown]
